APPROVED DRUG PRODUCT: LUPRON DEPOT
Active Ingredient: LEUPROLIDE ACETATE
Strength: 3.75MG
Dosage Form/Route: INJECTABLE;INJECTION
Application: N020011 | Product #002
Applicant: ABBVIE ENDOCRINE INC
Approved: Oct 26, 1995 | RLD: Yes | RS: Yes | Type: RX